FAERS Safety Report 10512235 (Version 1)
Quarter: 2014Q3

REPORT INFORMATION
  Report Type: Spontaneous
  Country: US (occurrence: None)
  Receive Date: 20140926
  Receipt Date: 20140926
  Transmission Date: 20150326
  Serious: No
  Sender: FDA-Public Use
  Company Number: 1000069998

PATIENT
  Age: 19 Year
  Sex: Female

DRUGS (3)
  1. LINZESS [Suspect]
     Active Substance: LINACLOTIDE
     Indication: CROHN^S DISEASE
     Dosage: DAILY TO EVERY OTHER DAY
  2. HUMIRA [Suspect]
     Active Substance: ADALIMUMAB
     Indication: COLITIS ULCERATIVE
     Dosage: 1 IN 2 WK
     Dates: start: 201305, end: 2014
  3. HUMIRA [Suspect]
     Active Substance: ADALIMUMAB
     Indication: ANKYLOSING SPONDYLITIS
     Dosage: 1 IN 2 WK
     Dates: start: 201305, end: 2014

REACTIONS (3)
  - Oropharyngeal pain [None]
  - Drug ineffective [None]
  - Off label use [None]

NARRATIVE: CASE EVENT DATE: 20140609
